FAERS Safety Report 8570223-9 (Version None)
Quarter: 2012Q3

REPORT INFORMATION
  Report Type: 
  Country: None (occurrence: None)
  Receive Date: 20120803
  Receipt Date: 20120725
  Transmission Date: 20120928
  Serious: Yes (Other)
  Sender: FDA-Public Use
  Company Number: US-ASTRAZENECA-2012SE53023

PATIENT
  Age: 70 Year
  Sex: Male

DRUGS (1)
  1. NEXIUM [Suspect]
     Route: 048

REACTIONS (8)
  - DIVERTICULITIS [None]
  - ARTHRITIS [None]
  - DRUG INEFFECTIVE [None]
  - DYSPEPSIA [None]
  - DIARRHOEA [None]
  - POLYP [None]
  - DEHYDRATION [None]
  - GASTROOESOPHAGEAL REFLUX DISEASE [None]
